FAERS Safety Report 14709350 (Version 1)
Quarter: 2018Q2

REPORT INFORMATION
  Report Type: Other
  Country: GR (occurrence: GR)
  Receive Date: 20180403
  Receipt Date: 20180403
  Transmission Date: 20180711
  Serious: Yes (Death, Other)
  Sender: FDA-Public Use
  Company Number: GR-TAKEDA-2018MPI003408

PATIENT
  Age: 50 Year
  Sex: Female

DRUGS (1)
  1. VELCADE [Suspect]
     Active Substance: BORTEZOMIB
     Indication: PLASMA CELL MYELOMA
     Dosage: 3.5 MG, UNK
     Route: 058
     Dates: start: 20180315, end: 20180315

REACTIONS (4)
  - Pulmonary embolism [Fatal]
  - Loss of consciousness [Fatal]
  - Dyspnoea [Fatal]
  - Cardiac arrest [Fatal]

NARRATIVE: CASE EVENT DATE: 20180315
